FAERS Safety Report 21130385 (Version 1)
Quarter: 2022Q3

REPORT INFORMATION
  Report Type: Spontaneous
  Country: IE (occurrence: IE)
  Receive Date: 20220726
  Receipt Date: 20220726
  Transmission Date: 20221027
  Serious: Yes (Life-Threatening, Other)
  Sender: FDA-Public Use
  Company Number: IE-SUN PHARMACEUTICAL INDUSTRIES LTD-2022R1-344389

PATIENT
  Age: 77 Year
  Sex: Male

DRUGS (2)
  1. DOBUTAMINE [Suspect]
     Active Substance: DOBUTAMINE HYDROCHLORIDE
     Indication: Product used for unknown indication
     Dosage: 7.5 MICROGRAM/KILOGRAM/ HOUR
     Route: 065
  2. FUROSEMIDE [Suspect]
     Active Substance: FUROSEMIDE
     Indication: Product used for unknown indication
     Dosage: 240 MG/24 HOURS
     Route: 065

REACTIONS (5)
  - Atrial fibrillation [Unknown]
  - Blood pressure decreased [Unknown]
  - Disease progression [Unknown]
  - Hyponatraemia [Unknown]
  - Pulmonary oedema [Unknown]
